FAERS Safety Report 4370456-1 (Version None)
Quarter: 2004Q2

REPORT INFORMATION
  Report Type: 
  Country: None (occurrence: None)
  Receive Date: 20040603
  Receipt Date: 20040127
  Transmission Date: 20050107
  Serious: Yes (Hospitalization, Other)
  Sender: FDA-Public Use
  Company Number: US-BRISTOL-MYERS SQUIBB COMPANY-12488359

PATIENT
  Age: 53 Year
  Sex: Female

DRUGS (2)
  1. ABILIFY [Suspect]
     Indication: PSYCHOTIC DISORDER
     Route: 048
     Dates: start: 20040112, end: 20040114
  2. GEODON [Concomitant]
     Dosage: TAKEN FOR MANY MONTHS(NO DOSE SPEC);10-JAN-04 DECR TO 20 MG BID; 14-JAN-04,40 MG AM + 20 MG HS
     Route: 048

REACTIONS (3)
  - ATRIAL FIBRILLATION [None]
  - BLOOD PRESSURE INCREASED [None]
  - EXTRASYSTOLES [None]
